FAERS Safety Report 7117264-6 (Version None)
Quarter: 2010Q4

REPORT INFORMATION
  Report Type: 
  Country: None (occurrence: None)
  Receive Date: 20101122
  Receipt Date: 20100505
  Transmission Date: 20110411
  Serious: Yes (Hospitalization)
  Sender: FDA-Public Use
  Company Number: PHHO2010US05532

PATIENT
  Sex: Female
  Weight: 55 kg

DRUGS (13)
  1. BLINDED ACLASTA/ZOLEDRONATE T29581+A++OS [Suspect]
     Dosage: DOUBLE BLIND
     Route: 042
     Dates: start: 20100106, end: 20100106
  2. BLINDED NO TREATMENT RECEIVED NOMED [Suspect]
     Dosage: DOUBLE BLIND
     Route: 042
     Dates: start: 20100106, end: 20100106
  3. PLACEBO [Suspect]
     Dosage: DOUBLE BLIND
     Route: 042
     Dates: start: 20100106, end: 20100106
  4. RILATINE [Suspect]
  5. CELEXA [Suspect]
  6. DITROPAN [Suspect]
  7. WELLBUTRIN [Suspect]
  8. OXYCODONE [Suspect]
  9. LEXAPRO [Suspect]
  10. ZYRTEC [Suspect]
  11. CLINDAMYCIN [Suspect]
  12. CALCIUM [Concomitant]
  13. VITAMIN D3 [Concomitant]

REACTIONS (9)
  - APHASIA [None]
  - CEREBROVASCULAR ACCIDENT [None]
  - DELIRIUM [None]
  - ENCEPHALOPATHY [None]
  - FALL [None]
  - HYPONATRAEMIA [None]
  - INAPPROPRIATE ANTIDIURETIC HORMONE SECRETION [None]
  - URINARY TRACT INFECTION BACTERIAL [None]
  - WHITE BLOOD CELL COUNT INCREASED [None]
